FAERS Safety Report 10423572 (Version 2)
Quarter: 2014Q4

REPORT INFORMATION
  Report Type: Spontaneous
  Country: US (occurrence: US)
  Receive Date: 20140902
  Receipt Date: 20141028
  Transmission Date: 20150528
  Serious: Yes (Other)
  Sender: FDA-Public Use
  Company Number: US-009507513-1409USA000776

PATIENT
  Age: 49 Year
  Sex: Female

DRUGS (4)
  1. PEGASYS [Suspect]
     Active Substance: PEGINTERFERON ALFA-2A
     Indication: HEPATITIS C
     Dosage: 135 MICROGRAM, QW
     Route: 058
     Dates: start: 20130301
  2. VICTRELIS [Suspect]
     Active Substance: BOCEPREVIR
     Indication: HEPATITIS C
     Dosage: 800 MG, TID
     Route: 048
     Dates: start: 20130401
  3. REBETOL [Concomitant]
     Active Substance: RIBAVIRIN
     Dosage: 400 MG, HS
     Route: 048
  4. REBETOL [Concomitant]
     Active Substance: RIBAVIRIN
     Indication: HEPATITIS C
     Dosage: 600 MG, IN THE MORNING
     Route: 048

REACTIONS (2)
  - Rash [Not Recovered/Not Resolved]
  - White blood cell count decreased [Not Recovered/Not Resolved]

NARRATIVE: CASE EVENT DATE: 20130703
